FAERS Safety Report 6354282-X (Version None)
Quarter: 2009Q3

REPORT INFORMATION
  Report Type: 
  Country: None (occurrence: None)
  Receive Date: 20090914
  Receipt Date: 20090903
  Transmission Date: 20100115
  Serious: Yes (Other)
  Sender: FDA-Public Use
  Company Number: PHHY2009MX37529

PATIENT
  Sex: Male

DRUGS (3)
  1. RASILEZ [Suspect]
     Indication: ANGINA PECTORIS
     Dosage: 1 TABLET (150 MG) PER DAY
     Route: 048
     Dates: start: 20090804
  2. ASPIRIN [Concomitant]
  3. ADALAT [Concomitant]
     Dosage: UNK

REACTIONS (5)
  - CARDIAC FAILURE [None]
  - HYPOAESTHESIA [None]
  - HYPOAESTHESIA ORAL [None]
  - NAUSEA [None]
  - SUFFOCATION FEELING [None]
